FAERS Safety Report 6254586-5 (Version None)
Quarter: 2009Q3

REPORT INFORMATION
  Report Type: 
  Country: None (occurrence: None)
  Receive Date: 20090702
  Receipt Date: 20090624
  Transmission Date: 20100115
  Serious: Yes (Other)
  Sender: FDA-Public Use
  Company Number: A0793529A

PATIENT
  Age: 40 Year
  Sex: Female

DRUGS (3)
  1. VALTREX [Suspect]
     Indication: GENITAL HERPES
     Dosage: 500MG TWICE PER DAY
     Route: 048
     Dates: start: 20050101
  2. XANAX [Concomitant]
  3. RHINOCORT NASAL [Concomitant]

REACTIONS (4)
  - ALOPECIA [None]
  - COITAL BLEEDING [None]
  - DRUG INEFFECTIVE [None]
  - ILL-DEFINED DISORDER [None]
